FAERS Safety Report 9703343 (Version 2)
Quarter: 2013Q4

REPORT INFORMATION
  Report Type: Spontaneous
  Country: DE (occurrence: DE)
  Receive Date: 20131122
  Receipt Date: 20131122
  Transmission Date: 20140711
  Serious: Yes (Hospitalization)
  Sender: FDA-Public Use
  Company Number: PHHY2013DE116852

PATIENT
  Age: 67 Year
  Sex: Male
  Weight: 62 kg

DRUGS (10)
  1. STALEVO [Suspect]
     Indication: PARKINSON^S DISEASE
     Dosage: 1 DF (200/125/31MG), DAILY
     Dates: start: 201304
  2. STALEVO [Suspect]
     Dosage: 3 DF (200/150/37MG), DAILY
     Dates: start: 201305, end: 201306
  3. COMTAN [Suspect]
     Dosage: 1 DF, DAILY
  4. MADOPAR LT [Concomitant]
     Dosage: UNK UKN, UNK
  5. LEVOCOMP [Concomitant]
     Dosage: 1 DF, UNK
  6. REQUIP E M [Concomitant]
     Dosage: 2 DF, DAILY
  7. REQUIP E M [Concomitant]
     Dosage: 1 DF (2MG), DAILY
  8. ATROPIN [Concomitant]
     Dosage: 2 DRP, TID (2 DROPS ON TOUNG, UPTO 3X PER DAY
  9. LYRICA [Concomitant]
     Dosage: 2 DF, UNK (1-0-1)
  10. NOVALGIN [Concomitant]
     Dosage: 40 DRP, (40 DROPS IN MORNING, PLUS AS NEEDED)

REACTIONS (3)
  - Drug-induced liver injury [Not Recovered/Not Resolved]
  - Hepatic enzyme increased [Not Recovered/Not Resolved]
  - Toxicity to various agents [Unknown]
